FAERS Safety Report 12202978 (Version 3)
Quarter: 2016Q2

REPORT INFORMATION
  Report Type: Spontaneous
  Country: US (occurrence: US)
  Receive Date: 20160323
  Receipt Date: 20160504
  Transmission Date: 20160815
  Serious: Yes (Hospitalization, Other)
  Sender: FDA-Public Use
  Company Number: US-HOSPIRA-3214773

PATIENT
  Age: 65 Year
  Sex: Male
  Weight: 109 kg

DRUGS (16)
  1. VANCOMYCIN [Concomitant]
     Active Substance: VANCOMYCIN
     Indication: PRODUCT USED FOR UNKNOWN INDICATION
     Dates: start: 201604
  2. DIGOXIN. [Concomitant]
     Active Substance: DIGOXIN
     Indication: ATRIAL FIBRILLATION
  3. LISINOPRIL. [Suspect]
     Active Substance: LISINOPRIL
     Indication: PRODUCT USED FOR UNKNOWN INDICATION
  4. SPIRONOLACTONE. [Suspect]
     Active Substance: SPIRONOLACTONE
     Indication: PRODUCT USED FOR UNKNOWN INDICATION
  5. FUROSEMIDE. [Suspect]
     Active Substance: FUROSEMIDE
     Indication: PULMONARY OEDEMA
     Dates: start: 20160315
  6. COUMADIN [Concomitant]
     Active Substance: WARFARIN SODIUM
     Indication: PRODUCT USED FOR UNKNOWN INDICATION
     Dates: end: 20160219
  7. FLUOXETINE HYDROCHLORIDE. [Suspect]
     Active Substance: FLUOXETINE HYDROCHLORIDE
     Indication: DEPRESSION
     Dates: start: 20160418
  8. PLAVIX [Suspect]
     Active Substance: CLOPIDOGREL BISULFATE
     Indication: PRODUCT USED FOR UNKNOWN INDICATION
  9. WARFARIN [Suspect]
     Active Substance: WARFARIN
     Indication: PRODUCT USED FOR UNKNOWN INDICATION
  10. BRILINTA [Suspect]
     Active Substance: TICAGRELOR
     Indication: ANTIPLATELET THERAPY
  11. ATORVASTATIN CALCIUM. [Suspect]
     Active Substance: ATORVASTATIN CALCIUM
     Indication: BLOOD CHOLESTEROL
  12. FUROSEMIDE. [Suspect]
     Active Substance: FUROSEMIDE
     Indication: OEDEMA PERIPHERAL
     Dates: start: 20160305
  13. METOPROLOL. [Suspect]
     Active Substance: METOPROLOL
     Indication: PRODUCT USED FOR UNKNOWN INDICATION
  14. TRADJENTA [Suspect]
     Active Substance: LINAGLIPTIN
     Indication: PRODUCT USED FOR UNKNOWN INDICATION
  15. BABY ASPIRIN [Suspect]
     Active Substance: ASPIRIN
     Indication: PRODUCT USED FOR UNKNOWN INDICATION
  16. LASIX [Concomitant]
     Active Substance: FUROSEMIDE
     Indication: SWELLING

REACTIONS (19)
  - Haematoma [Unknown]
  - Sepsis [Unknown]
  - Clostridium difficile infection [Unknown]
  - Oedema peripheral [Unknown]
  - Hepatitis [Unknown]
  - Weight decreased [Unknown]
  - Staphylococcal infection [Unknown]
  - Pulmonary oedema [Unknown]
  - Abscess [Unknown]
  - Skin disorder [Unknown]
  - Dysgeusia [Not Recovered/Not Resolved]
  - Haemoglobin decreased [Recovered/Resolved]
  - Internal haemorrhage [Recovered/Resolved]
  - Hyperventilation [Unknown]
  - Blood pressure decreased [Unknown]
  - Peritoneal haematoma [Unknown]
  - Thrombosis [Unknown]
  - Dysphagia [Unknown]
  - Malnutrition [Unknown]

NARRATIVE: CASE EVENT DATE: 20160226
